FAERS Safety Report 7200717 (Version 5)
Quarter: 2015Q4

REPORT INFORMATION
  Report Type: Report from Study
  Country: DE (occurrence: DE)
  Receive Date: 20091204
  Receipt Date: 20151015
  Transmission Date: 20160305
  Serious: Yes (Death, Life-Threatening, Hospitalization, Disabling, Other)
  Sender: FDA-Public Use
  Company Number: PHHO2007DE13415

PATIENT
  Age: 59 Year
  Sex: Male

DRUGS (8)
  1. OVASTAT [Concomitant]
     Indication: PRODUCT USED FOR UNKNOWN INDICATION
     Route: 065
  2. ESOMEPRAZOLE [Concomitant]
     Active Substance: ESOMEPRAZOLE
  3. ARCOXIA [Concomitant]
     Active Substance: ETORICOXIB
     Indication: PRODUCT USED FOR UNKNOWN INDICATION
     Route: 065
  4. AMOXICILLIN W/CLAVULANIC ACID [Concomitant]
     Active Substance: AMOXICILLIN\CLAVULANIC ACID
  5. ACTOS [Concomitant]
     Active Substance: PIOGLITAZONE HYDROCHLORIDE
     Indication: PRODUCT USED FOR UNKNOWN INDICATION
     Route: 065
  6. FORTECORTIN [Concomitant]
     Active Substance: DEXAMETHASONE
     Indication: PRODUCT USED FOR UNKNOWN INDICATION
     Route: 065
  7. POTASSIUM [Concomitant]
     Active Substance: POTASSIUM
  8. CGP 57148B [Suspect]
     Active Substance: IMATINIB MESYLATE
     Indication: PROSTATE CANCER
     Dosage: 800 MG, QD
     Route: 048
     Dates: start: 20070405

REACTIONS (30)
  - Postrenal failure [Fatal]
  - Mental disorder [Recovering/Resolving]
  - Sepsis [Recovering/Resolving]
  - Deep vein thrombosis [Recovering/Resolving]
  - Hydronephrosis [Recovering/Resolving]
  - Dehydration [Recovered/Resolved]
  - Penile oedema [Unknown]
  - Death [Fatal]
  - Haematemesis [Recovered/Resolved]
  - Alcohol abuse [Recovering/Resolving]
  - Hypokalaemia [Unknown]
  - Haemoglobin decreased [Recovered/Resolved]
  - Hypertension [Recovering/Resolving]
  - Ileus [Recovered/Resolved]
  - Gastric haemorrhage [Recovered/Resolved]
  - Malignant neoplasm progression [Recovering/Resolving]
  - Bladder obstruction [Recovering/Resolving]
  - Bronchospasm [Recovering/Resolving]
  - Hypotension [Recovering/Resolving]
  - Electrolyte imbalance [Recovering/Resolving]
  - Cardiac disorder [Recovering/Resolving]
  - Cardiovascular disorder [Unknown]
  - Dyspepsia [Recovering/Resolving]
  - Drug ineffective [Recovering/Resolving]
  - Blood creatinine increased [Recovering/Resolving]
  - Bladder tamponade [Recovering/Resolving]
  - Haematuria [Recovering/Resolving]
  - Scrotal oedema [Recovered/Resolved]
  - Cardio-respiratory arrest [Recovered/Resolved]
  - Urinary bladder haemorrhage [Recovering/Resolving]

NARRATIVE: CASE EVENT DATE: 20070812
